FAERS Safety Report 24234196 (Version 7)
Quarter: 2025Q3

REPORT INFORMATION
  Report Type: Report from Study
  Country: CA (occurrence: CA)
  Receive Date: 20240821
  Receipt Date: 20250902
  Transmission Date: 20251020
  Serious: Yes (Other)
  Sender: BAUSCH AND LOMB
  Company Number: CA-BAUSCH-BL-2024-012379

PATIENT
  Age: 78 Year
  Sex: Male

DRUGS (3)
  1. SILIQ [Suspect]
     Active Substance: BRODALUMAB
     Indication: Psoriasis
     Dosage: 210MG / 1.5ML, WEEKLY (WEEK0, 1 AND 2)
     Route: 058
     Dates: start: 20230112, end: 202301
  2. SILIQ [Suspect]
     Active Substance: BRODALUMAB
     Dosage: 210MG / 1.5ML, Q2 WEEKS
     Route: 058
     Dates: start: 202302, end: 202407
  3. OZEMPIC [Suspect]
     Active Substance: SEMAGLUTIDE
     Indication: Product used for unknown indication
     Route: 065
     Dates: start: 202505

REACTIONS (4)
  - Diabetic foot [Recovered/Resolved]
  - Gait inability [Recovered/Resolved]
  - Psoriasis [Recovered/Resolved]
  - Back pain [Not Recovered/Not Resolved]

NARRATIVE: CASE EVENT DATE: 20240101
